FAERS Safety Report 8002266-8 (Version None)
Quarter: 2011Q4

REPORT INFORMATION
  Report Type: 
  Country: None (occurrence: None)
  Receive Date: 20111220
  Receipt Date: 20111206
  Transmission Date: 20120403
  Serious: Yes (Other)
  Sender: FDA-Public Use
  Company Number: 1128608

PATIENT
  Age: 10 Year
  Sex: Female
  Weight: 34.09 kg

DRUGS (4)
  1. MIDAZOLAM [Concomitant]
  2. PROPOFOL [Suspect]
     Indication: SEDATIVE THERAPY
     Dosage: 100 MG, ONCE,,INTRAVENOUS (NOT OTHERWISE SPECIFIED)
     Route: 042
     Dates: start: 20111007, end: 20111007
  3. KETAMINE HCL [Concomitant]
  4. DECADRON [Concomitant]

REACTIONS (4)
  - STAPHYLOCOCCAL INFECTION [None]
  - PYREXIA [None]
  - VOMITING [None]
  - NAUSEA [None]
